FAERS Safety Report 7265067-4 (Version None)
Quarter: 2011Q1

REPORT INFORMATION
  Report Type: 
  Country: None (occurrence: None)
  Receive Date: 20110131
  Receipt Date: 20110124
  Transmission Date: 20110831
  Serious: Yes (Other)
  Sender: FDA-Public Use
  Company Number: US-TEVA-264610USA

PATIENT
  Age: 45 Year
  Sex: Male

DRUGS (1)
  1. AMPHOTERICIN B 50 MG SDV (20 ML) [Suspect]
     Indication: ENDOPHTHALMITIS
     Dosage: INTRAVITREAL, 5 ?G/0.1ML
     Route: 047

REACTIONS (6)
  - PANOPHTHALMITIS [None]
  - CATARACT [None]
  - INCORRECT DOSE ADMINISTERED BY DEVICE [None]
  - ACCIDENTAL OVERDOSE [None]
  - OCULAR TOXICITY [None]
  - RETINAL DETACHMENT [None]
